FAERS Safety Report 10390532 (Version 1)
Quarter: 2014Q3

REPORT INFORMATION
  Report Type: Spontaneous
  Country: FR (occurrence: FR)
  Receive Date: 20140818
  Receipt Date: 20140818
  Transmission Date: 20150326
  Serious: Yes (Life-Threatening)
  Sender: FDA-Public Use
  Company Number: FR-ASTRAZENECA-2014SE59642

PATIENT
  Age: 53 Year
  Sex: Female

DRUGS (3)
  1. CARBOCAINE [Suspect]
     Active Substance: MEPIVACAINE HYDROCHLORIDE
     Indication: ANAESTHESIA
     Route: 053
     Dates: start: 20140725, end: 20140725
  2. SOTALEX [Concomitant]
     Active Substance: SOTALOL
     Indication: TACHYCARDIA
     Dates: start: 2007
  3. SOTALEX [Concomitant]
     Active Substance: SOTALOL
     Indication: VENTRICULAR EXTRASYSTOLES
     Dates: start: 2007

REACTIONS (1)
  - Cardiac arrest [Recovered/Resolved]

NARRATIVE: CASE EVENT DATE: 20140725
